FAERS Safety Report 4830841-8 (Version None)
Quarter: 2005Q4

REPORT INFORMATION
  Report Type: 
  Country: None (occurrence: None)
  Receive Date: 20051117
  Receipt Date: 20050930
  Transmission Date: 20060501
  Serious: Yes (Death, Other)
  Sender: FDA-Public Use
  Company Number: US-MERCK-0510USA01958

PATIENT
  Age: 91 Year
  Sex: Male
  Weight: 64 kg

DRUGS (20)
  1. VIOXX [Suspect]
     Indication: ARTHRITIS
     Route: 048
     Dates: start: 20020510, end: 20040130
  2. ACIPHEX [Concomitant]
     Route: 065
  3. ATENOLOL [Concomitant]
     Route: 065
  4. AVELOX [Concomitant]
     Route: 065
  5. CELEXA [Concomitant]
     Route: 065
  6. CIPRO [Concomitant]
     Route: 065
  7. FLOMAX (MORNIFLUMATE) [Concomitant]
     Route: 065
  8. FOLIC ACID [Concomitant]
     Route: 065
  9. LEVAQUIN [Concomitant]
     Route: 065
  10. LEVOXYL [Concomitant]
     Route: 065
  11. LIPITOR [Concomitant]
     Route: 065
  12. MACROBID [Concomitant]
     Route: 065
  13. NYSTATIN AND TRIAMCINOLONE ACETONIDE [Concomitant]
     Route: 065
  14. PHENAZOPYRIDINE HYDROCHLORIDE [Concomitant]
     Route: 065
  15. RANITIDINE [Concomitant]
     Route: 065
  16. SANTYL [Concomitant]
     Route: 065
  17. SULFAMETHOXAZOLE AND TRIMETHOPRIM [Concomitant]
     Route: 065
  18. SODIUM CHLORIDE [Concomitant]
     Route: 065
  19. ZOCOR [Concomitant]
     Route: 048
  20. HYDROCHLOROTHIAZIDE AND TRIAMTERENE [Concomitant]
     Route: 065

REACTIONS (4)
  - CARDIAC DISORDER [None]
  - DEATH [None]
  - ISCHAEMIC STROKE [None]
  - MYOCARDIAL INFARCTION [None]
